FAERS Safety Report 20340552 (Version 2)
Quarter: 2022Q1

REPORT INFORMATION
  Report Type: Spontaneous
  Country: JP (occurrence: JP)
  Receive Date: 20220117
  Receipt Date: 20220128
  Transmission Date: 20220423
  Serious: No
  Sender: FDA-Public Use
  Company Number: JP-GSKNCCC-Case-01380845_AE-53096

PATIENT
  Sex: Female
  Weight: 78 kg

DRUGS (5)
  1. LAMICTAL [Suspect]
     Active Substance: LAMOTRIGINE
     Indication: Bipolar disorder
     Dosage: 50 MG, 1D
  2. INVEGA [Concomitant]
     Active Substance: PALIPERIDONE
  3. BELSOMRA [Concomitant]
     Active Substance: SUVOREXANT
  4. LUNESTA [Concomitant]
     Active Substance: ESZOPICLONE
  5. RISPERDAL [Concomitant]
     Active Substance: RISPERIDONE

REACTIONS (1)
  - Exposure during pregnancy [Unknown]
